FAERS Safety Report 21291204 (Version 1)
Quarter: 2022Q3

REPORT INFORMATION
  Report Type: Spontaneous
  Country: US (occurrence: US)
  Receive Date: 20220903
  Receipt Date: 20220903
  Transmission Date: 20221026
  Serious: No
  Sender: FDA-Public Use
  Company Number: US-drreddys-SPO/USA/22/0153721

PATIENT
  Age: 42 Year

DRUGS (1)
  1. ZENATANE [Suspect]
     Active Substance: ISOTRETINOIN
     Indication: Product used for unknown indication
     Dosage: RMA ISSUE DATE: 21/JUNE/2022 12:29:38 PM, 19/JULY/2022 01:44:41 PM

REACTIONS (2)
  - Migraine [Unknown]
  - Dyspnoea [Unknown]
